FAERS Safety Report 6388249-2 (Version None)
Quarter: 2009Q3

REPORT INFORMATION
  Report Type: 
  Country: None (occurrence: None)
  Receive Date: 20090930
  Receipt Date: 20090918
  Transmission Date: 20100115
  Serious: Yes (Hospitalization)
  Sender: FDA-Public Use
  Company Number: 8032005

PATIENT
  Age: 65 Year
  Sex: Female
  Weight: 60.7 kg

DRUGS (10)
  1. CERTOLIZUMAB PEGOL [Suspect]
     Indication: RHEUMATOID ARTHRITIS
     Dosage: 200 MG 1/2W SC
     Route: 058
     Dates: start: 20050711, end: 20060626
  2. CERTOLIZUMAB PEGOL [Suspect]
     Indication: RHEUMATOID ARTHRITIS
     Dosage: 400 MG 1/2W SC
     Route: 058
     Dates: start: 20060710, end: 20080119
  3. CERTOLIZUMAB PEGOL [Suspect]
     Indication: RHEUMATOID ARTHRITIS
     Dosage: 400 MG 1/2W SC
     Route: 058
     Dates: start: 20080206, end: 20080218
  4. CERTOLIZUMAB PEGOL [Suspect]
     Indication: RHEUMATOID ARTHRITIS
     Dosage: 200 MG 1/2W SC
     Route: 058
     Dates: start: 20080218, end: 20080412
  5. CERTOLIZUMAB PEGOL [Suspect]
     Indication: RHEUMATOID ARTHRITIS
     Dosage: 400 MG 1/2W SC
     Route: 058
     Dates: start: 20080425
  6. METHOTREXATE [Concomitant]
  7. DICLFENAC RETARD [Concomitant]
  8. ISONIAZID [Concomitant]
  9. ACID FOLIC [Concomitant]
  10. VITAMIN B6 [Concomitant]

REACTIONS (9)
  - ARTHRALGIA [None]
  - BODY TEMPERATURE INCREASED [None]
  - BURSITIS [None]
  - EAR INFECTION [None]
  - JOINT SWELLING [None]
  - NO THERAPEUTIC RESPONSE [None]
  - PURULENT DISCHARGE [None]
  - RHEUMATOID ARTHRITIS [None]
  - TUBERCULIN TEST POSITIVE [None]
